FAERS Safety Report 6414474-8 (Version None)
Quarter: 2009Q4

REPORT INFORMATION
  Report Type: 
  Country: None (occurrence: None)
  Receive Date: 20091026
  Receipt Date: 20091021
  Transmission Date: 20100525
  Serious: Yes (Death, Other)
  Sender: FDA-Public Use
  Company Number: PHHY2009FR45960

PATIENT
  Age: 7 Month

DRUGS (8)
  1. CYCLOSPORINE [Suspect]
     Indication: RENAL TRANSPLANT
     Route: 048
  2. PREDNISOLONE [Suspect]
     Indication: RENAL TRANSPLANT
     Dosage: 300 MG/M2, UNK
  3. PREDNISOLONE [Suspect]
     Dosage: 60 MG/M2, UNK
  4. PREDNISOLONE [Suspect]
     Dosage: 2.5 MG/M2, UNK
  5. AZATHIOPRINE [Suspect]
     Indication: RENAL TRANSPLANT
     Dosage: 3 MG/KG, UNK
  6. AZATHIOPRINE [Suspect]
     Dosage: 2 MG/KG, UNK
  7. AZATHIOPRINE [Suspect]
     Dosage: 1 MG/KG, UNK
  8. THYMOGLOBULIN [Concomitant]
     Indication: RENAL TRANSPLANT
     Dosage: 2 MG/KG/DAY

REACTIONS (6)
  - AIR EMBOLISM [None]
  - EPSTEIN-BARR VIRUS ASSOCIATED LYMPHOPROLIFERATIVE DISORDER [None]
  - HAEMODIALYSIS [None]
  - KIDNEY TRANSPLANT REJECTION [None]
  - LYMPHADENOPATHY [None]
  - SPLENOMEGALY [None]
